FAERS Safety Report 9413918 (Version 1)
Quarter: 2013Q3

REPORT INFORMATION
  Report Type: Spontaneous
  Country: US (occurrence: US)
  Receive Date: 20130723
  Receipt Date: 20130723
  Transmission Date: 20140515
  Serious: No
  Sender: FDA-Public Use
  Company Number: US-TEVA-420350USA

PATIENT
  Sex: Female
  Weight: 47.67 kg

DRUGS (13)
  1. PLAN B ONE-STEP [Suspect]
     Indication: POST COITAL CONTRACEPTION
     Dosage: 1.5 MILLIGRAM DAILY;
     Route: 048
  2. TYROSINE [Concomitant]
     Indication: PRIMARY HYPOTHYROIDISM
  3. ACTONEL [Concomitant]
     Indication: OSTEOPOROSIS
  4. PLAQUENIL [Concomitant]
     Indication: RHEUMATOID ARTHRITIS
  5. BUTRANS PATCHES [Concomitant]
     Indication: PAIN MANAGEMENT
  6. PREDNISONE [Concomitant]
     Indication: AUTOIMMUNE DISORDER
  7. LAMICTAL [Concomitant]
     Indication: NEURALGIA
  8. AMBIEN [Concomitant]
  9. TOPAMAX [Concomitant]
     Indication: SLEEP DISORDER
  10. CLONAZEPAM [Concomitant]
     Indication: ANXIETY
  11. VITAMIN B12 [Concomitant]
     Indication: MEDICAL DIET
  12. NUVIGIL [Concomitant]
     Indication: FATIGUE
  13. MIRALAX [Concomitant]
     Indication: CONSTIPATION

REACTIONS (1)
  - Menstruation irregular [Recovered/Resolved]
